FAERS Safety Report 11445018 (Version 2)
Quarter: 2016Q1

REPORT INFORMATION
  Report Type: Spontaneous
  Country: US (occurrence: US)
  Receive Date: 20150902
  Receipt Date: 20160208
  Transmission Date: 20160525
  Serious: No
  Sender: FDA-Public Use
  Company Number: US-VIIV HEALTHCARE LIMITED-US2015GSK123868

PATIENT
  Age: 58 Year
  Sex: Male

DRUGS (3)
  1. KALETRA [Concomitant]
     Active Substance: LOPINAVIR\RITONAVIR
     Dosage: UNK
  2. TIVICAY [Suspect]
     Active Substance: DOLUTEGRAVIR SODIUM
     Indication: PRODUCT USED FOR UNKNOWN INDICATION
     Dosage: UNK
     Dates: end: 20150824
  3. TRUVADA [Concomitant]
     Active Substance: EMTRICITABINE\TENOFOVIR DISOPROXIL FUMARATE
     Dosage: UNK

REACTIONS (9)
  - Drug hypersensitivity [Recovering/Resolving]
  - Alanine aminotransferase increased [Recovering/Resolving]
  - Rash [Recovered/Resolved]
  - Aspartate aminotransferase increased [Recovering/Resolving]
  - Urticaria [Recovered/Resolved]
  - Hepatic enzyme increased [Recovering/Resolving]
  - Arthralgia [Recovered/Resolved]
  - Pyrexia [Recovering/Resolving]
  - Pain [Recovered/Resolved]

NARRATIVE: CASE EVENT DATE: 20150822
